FAERS Safety Report 25548751 (Version 1)
Quarter: 2025Q3

REPORT INFORMATION
  Report Type: Spontaneous
  Country: GB (occurrence: GB)
  Receive Date: 20250714
  Receipt Date: 20250714
  Transmission Date: 20251021
  Serious: Yes (Other)
  Sender: ELI LILLY AND COMPANY
  Company Number: None

PATIENT
  Age: 32 Year
  Sex: Female
  Weight: 90 kg

DRUGS (3)
  1. MOUNJARO [Suspect]
     Active Substance: TIRZEPATIDE
     Indication: Weight control
     Dosage: 10 MG, WEEKLY (1/W)
     Route: 065
  2. LEVOTHYROXINE [Concomitant]
     Active Substance: LEVOTHYROXINE
     Indication: Autoimmune thyroiditis
  3. SERTRALINE [Concomitant]
     Active Substance: SERTRALINE HYDROCHLORIDE
     Indication: Depression

REACTIONS (10)
  - Myalgia [Recovering/Resolving]
  - Hot flush [Not Recovered/Not Resolved]
  - Decreased appetite [Not Recovered/Not Resolved]
  - Feeling drunk [Not Recovered/Not Resolved]
  - Dysstasia [Unknown]
  - Dizziness [Recovering/Resolving]
  - Abdominal pain upper [Unknown]
  - Diarrhoea [Not Recovered/Not Resolved]
  - Vomiting [Recovering/Resolving]
  - Nausea [Recovering/Resolving]
